FAERS Safety Report 9959868 (Version 1)
Quarter: 2014Q1

REPORT INFORMATION
  Report Type: Report from Study
  Country: US (occurrence: US)
  Receive Date: 20140305
  Receipt Date: 20140305
  Transmission Date: 20141002
  Serious: No
  Sender: FDA-Public Use
  Company Number: US-ABBVIE-13P-163-1106341-00

PATIENT
  Age: 39 Year
  Sex: Male
  Weight: 115.77 kg

DRUGS (5)
  1. HUMIRA [Suspect]
     Indication: RHEUMATOID ARTHRITIS
     Dates: start: 201304
  2. WELLBUTRIN [Concomitant]
     Indication: RHEUMATOID ARTHRITIS
  3. WELLBUTRIN [Concomitant]
     Indication: ASTHENIA
  4. ALEVE [Concomitant]
     Indication: ARTHRITIS
  5. VITAMIN D [Concomitant]
     Indication: VITAMIN D DECREASED

REACTIONS (4)
  - Therapeutic response unexpected [Not Recovered/Not Resolved]
  - Nausea [Not Recovered/Not Resolved]
  - Paraesthesia [Not Recovered/Not Resolved]
  - Gastroenteritis viral [Recovered/Resolved]
